FAERS Safety Report 4972823-1 (Version None)
Quarter: 2006Q2

REPORT INFORMATION
  Report Type: 
  Country: None (occurrence: None)
  Receive Date: 20060414
  Receipt Date: 20060317
  Transmission Date: 20061013
  Serious: No
  Sender: FDA-Public Use
  Company Number: DE-JNJFOC-20060203777

PATIENT
  Sex: Male

DRUGS (2)
  1. TOPAMAX [Suspect]
     Route: 048
  2. TOPAMAX [Suspect]
     Indication: MIGRAINE
     Route: 048

REACTIONS (1)
  - PARAESTHESIA [None]
